FAERS Safety Report 5812768-8 (Version None)
Quarter: 2008Q3

REPORT INFORMATION
  Report Type: 
  Country: None (occurrence: None)
  Receive Date: 20080714
  Receipt Date: 20080707
  Transmission Date: 20090109
  Serious: Yes (Other)
  Sender: FDA-Public Use
  Company Number: 2008AL002849

PATIENT
  Age: 57 Year
  Sex: Female
  Weight: 66.6788 kg

DRUGS (3)
  1. DIGOXIN [Suspect]
     Indication: CONGENITAL CARDIOVASCULAR ANOMALY
     Dosage: 25MG, DAILY, PO
     Route: 048
     Dates: end: 20080221
  2. DIOVAN [Concomitant]
  3. ASPIRIN [Concomitant]

REACTIONS (6)
  - DIZZINESS [None]
  - FATIGUE [None]
  - HEART RATE INCREASED [None]
  - OVERDOSE [None]
  - PALPITATIONS [None]
  - VISUAL IMPAIRMENT [None]
